FAERS Safety Report 4933050-7 (Version None)
Quarter: 2006Q1

REPORT INFORMATION
  Report Type: 
  Country: None (occurrence: None)
  Receive Date: 20060302
  Receipt Date: 20060302
  Transmission Date: 20060701
  Serious: Yes (Hospitalization)
  Sender: FDA-Public Use
  Company Number: None

PATIENT
  Sex: Male
  Weight: 78.5 kg

DRUGS (12)
  1. REVLIMID [Suspect]
     Indication: GLIOBLASTOMA MULTIFORME
     Dosage: 15 MG/M2  QD X 21 DAYS PO
     Route: 048
     Dates: start: 20060207, end: 20060220
  2. REVLIMID [Suspect]
     Indication: GLIOBLASTOMA MULTIFORME
     Dosage: 15 MG/M2  QD X 21 DAYS PO
     Route: 048
     Dates: start: 20060222, end: 20060227
  3. PREVACID [Concomitant]
  4. SODIUM CHLORIDE [Concomitant]
  5. KEPPRA [Concomitant]
  6. URECHOLINE [Concomitant]
  7. ASPIRIN [Concomitant]
  8. DECADRON SRC [Concomitant]
  9. GLYCOLAX [Concomitant]
  10. DOXAZISIN [Concomitant]
  11. SINGULAIR [Concomitant]
  12. FOLIC ACID [Concomitant]

REACTIONS (3)
  - DRUG DOSE OMISSION [None]
  - PULMONARY EMBOLISM [None]
  - URINARY TRACT INFECTION [None]
